FAERS Safety Report 7704305-8 (Version None)
Quarter: 2011Q3

REPORT INFORMATION
  Report Type: 
  Country: None (occurrence: None)
  Receive Date: 20110823
  Receipt Date: 20110813
  Transmission Date: 20111222
  Serious: Yes (Hospitalization, Other)
  Sender: FDA-Public Use
  Company Number: PHHY2011BR73085

PATIENT
  Sex: Male

DRUGS (1)
  1. FORMOTEROL FUMARATE [Suspect]
     Indication: DYSPNOEA
     Dosage: 1 DF, QD
     Dates: start: 20110101

REACTIONS (2)
  - GASTROINTESTINAL NEOPLASM [None]
  - PULMONARY OEDEMA [None]
